FAERS Safety Report 5151518-8 (Version None)
Quarter: 2006Q4

REPORT INFORMATION
  Report Type: 
  Country: None (occurrence: None)
  Receive Date: 20061115
  Receipt Date: 20060508
  Transmission Date: 20070319
  Serious: Yes (Death, Hospitalization)
  Sender: FDA-Public Use
  Company Number: US-ELI_LILLY_AND_COMPANY-US200611002844

PATIENT
  Age: 56 Year
  Sex: Female
  Weight: 66.213 kg

DRUGS (5)
  1. ZYPREXA [Suspect]
     Dosage: 10 MG, UNK
     Dates: start: 20001122, end: 20030306
  2. RISPERIDONE [Concomitant]
     Dates: start: 20000120
  3. RISPERIDONE [Concomitant]
     Dates: start: 20000712
  4. RISPERIDONE [Concomitant]
     Dates: start: 20030417
  5. HYDROCHLORZIDE [Concomitant]
     Dates: start: 20000101, end: 20020201

REACTIONS (3)
  - BLOOD PRESSURE ABNORMAL [None]
  - DEATH [None]
  - DIABETES MELLITUS [None]
